FAERS Safety Report 25105794 (Version 1)
Quarter: 2025Q1

REPORT INFORMATION
  Report Type: Spontaneous
  Country: US (occurrence: US)
  Receive Date: 20250321
  Receipt Date: 20250321
  Transmission Date: 20250409
  Serious: No
  Sender: BRAEBURN PHARMACEUTICALS
  Company Number: US-BRAEBURN-US-BRA-24-001298

PATIENT
  Sex: Female

DRUGS (1)
  1. BRIXADI [Suspect]
     Active Substance: BUPRENORPHINE
     Indication: Drug dependence
     Dosage: 128 MILLIGRAM, MONTHLY
     Route: 058
     Dates: start: 20241126

REACTIONS (6)
  - Abdominal pain upper [Recovering/Resolving]
  - Irritability [Recovered/Resolved]
  - Hot flush [Recovering/Resolving]
  - Malaise [Recovering/Resolving]
  - Product dose omission issue [Unknown]
  - Product distribution issue [Unknown]
